FAERS Safety Report 7223087-X (Version None)
Quarter: 2011Q1

REPORT INFORMATION
  Report Type: 
  Country: None (occurrence: None)
  Receive Date: 20110112
  Receipt Date: 20100119
  Transmission Date: 20110831
  Serious: No
  Sender: FDA-Public Use
  Company Number: US-ALLERGAN-1000399US

PATIENT
  Age: 65 Year
  Sex: Female

DRUGS (4)
  1. TRICOR [Concomitant]
  2. NORVASC [Concomitant]
     Dosage: 1 UNK, UNK
  3. ENALAPRIL [Concomitant]
     Dosage: 20 MG, BID
  4. RESTASIS [Suspect]
     Indication: DRY EYE
     Dosage: 1 GTT, BID
     Route: 047
     Dates: start: 20091201, end: 20090101

REACTIONS (7)
  - EYE DISCHARGE [None]
  - EYE SWELLING [None]
  - EYE PAIN [None]
  - VISION BLURRED [None]
  - OCULAR HYPERAEMIA [None]
  - CONJUNCTIVITIS [None]
  - EYE IRRITATION [None]
